FAERS Safety Report 11697033 (Version 1)
Quarter: 2015Q4

REPORT INFORMATION
  Report Type: Spontaneous
  Country: US (occurrence: US)
  Receive Date: 20151104
  Receipt Date: 20151104
  Transmission Date: 20160304
  Serious: Yes (Other)
  Sender: FDA-Public Use
  Company Number: US-SHIRE-US201513560

PATIENT

DRUGS (4)
  1. LIALDA [Suspect]
     Active Substance: MESALAMINE
     Dosage: 2.4 G, 1X/DAY:QD
     Route: 048
  2. LIALDA [Suspect]
     Active Substance: MESALAMINE
     Indication: PRODUCT USED FOR UNKNOWN INDICATION
     Dosage: 2.4 G, 1X/DAY:QD
     Route: 048
  3. LIALDA [Suspect]
     Active Substance: MESALAMINE
     Dosage: 2.4 G, 2X/DAY:BID
     Route: 048
  4. MESALAMINE. [Concomitant]
     Active Substance: MESALAMINE
     Indication: PRODUCT USED FOR UNKNOWN INDICATION
     Dosage: 1 G, OTHER (AT BEDTIME)
     Route: 054

REACTIONS (2)
  - Inappropriate schedule of drug administration [Recovered/Resolved]
  - Neutropenia [Recovering/Resolving]
